FAERS Safety Report 9675693 (Version 1)
Quarter: 2013Q4

REPORT INFORMATION
  Report Type: Spontaneous
  Country: FR (occurrence: FR)
  Receive Date: 20131107
  Receipt Date: 20131107
  Transmission Date: 20140711
  Serious: Yes (Life-Threatening, Hospitalization, Other)
  Sender: FDA-Public Use
  Company Number: FR-AMGEN-FRASP2013077550

PATIENT
  Age: 34 Year
  Sex: Male

DRUGS (4)
  1. ENBREL [Suspect]
     Indication: ANKYLOSING SPONDYLITIS
     Dosage: UNK
     Route: 058
     Dates: start: 201101, end: 201305
  2. PREDNISONE [Suspect]
     Indication: ANKYLOSING SPONDYLITIS
     Dosage: BETWEEN 7.5 AND 10 MG DAILY
     Route: 048
     Dates: start: 201101, end: 20130508
  3. IBUPROFEN [Suspect]
     Indication: PRODUCT USED FOR UNKNOWN INDICATION
     Dosage: 400
     Route: 048
  4. HUMIRA [Suspect]
     Indication: ANKYLOSING SPONDYLITIS
     Dosage: UNK
     Route: 065
     Dates: end: 201101

REACTIONS (2)
  - Diverticular perforation [Recovered/Resolved with Sequelae]
  - Colonic abscess [Recovered/Resolved with Sequelae]
